FAERS Safety Report 22246418 (Version 15)
Quarter: 2025Q1

REPORT INFORMATION
  Report Type: Spontaneous
  Country: US (occurrence: US)
  Receive Date: 20230424
  Receipt Date: 20250318
  Transmission Date: 20250408
  Serious: Yes (Other)
  Sender: CSL BEHRING
  Company Number: US-BEH-2023157703

PATIENT
  Age: 29 Year
  Sex: Female
  Weight: 105.5 kg

DRUGS (12)
  1. HAEGARDA [Suspect]
     Active Substance: HUMAN C1-ESTERASE INHIBITOR
     Indication: Hereditary angioedema
     Dosage: 6000 INTERNATIONAL UNIT, BIW
     Route: 058
     Dates: start: 20210407
  2. HAEGARDA [Suspect]
     Active Substance: HUMAN C1-ESTERASE INHIBITOR
     Indication: Prophylaxis
     Route: 065
     Dates: start: 202305
  3. HAEGARDA [Suspect]
     Active Substance: HUMAN C1-ESTERASE INHIBITOR
     Indication: Prophylaxis
     Dosage: 6000 INTERNATIONAL UNIT, BIW
     Route: 058
     Dates: start: 20210408
  4. HAEGARDA [Suspect]
     Active Substance: HUMAN C1-ESTERASE INHIBITOR
     Dosage: 6000 INTERNATIONAL UNIT, BIW
     Route: 058
     Dates: start: 202104
  5. HAEGARDA [Suspect]
     Active Substance: HUMAN C1-ESTERASE INHIBITOR
     Dosage: 3000 INTERNATIONAL UNIT, BIW
     Route: 042
     Dates: start: 202104
  6. HAEGARDA [Suspect]
     Active Substance: HUMAN C1-ESTERASE INHIBITOR
     Dosage: 6000 INTERNATIONAL UNIT, BIW
     Route: 058
  7. HAEGARDA [Suspect]
     Active Substance: HUMAN C1-ESTERASE INHIBITOR
     Dosage: UNK, QW
     Route: 058
  8. HAEGARDA [Suspect]
     Active Substance: HUMAN C1-ESTERASE INHIBITOR
     Dosage: 6000 IU/KG, BIW
     Route: 058
  9. HAEGARDA [Suspect]
     Active Substance: HUMAN C1-ESTERASE INHIBITOR
     Route: 058
     Dates: start: 202104
  10. HAEGARDA [Suspect]
     Active Substance: HUMAN C1-ESTERASE INHIBITOR
     Indication: Hereditary angioedema
     Route: 065
     Dates: start: 20230315
  11. HAEGARDA [Suspect]
     Active Substance: HUMAN C1-ESTERASE INHIBITOR
     Indication: Hereditary angioedema
     Route: 065
     Dates: start: 20240323
  12. RUCONEST [Concomitant]
     Active Substance: CONESTAT ALFA

REACTIONS (33)
  - Hereditary angioedema [Recovered/Resolved]
  - Hereditary angioedema [Recovered/Resolved]
  - Hereditary angioedema [Recovered/Resolved]
  - Hereditary angioedema [Unknown]
  - Hereditary angioedema [Unknown]
  - Hereditary angioedema [Recovered/Resolved]
  - Hereditary angioedema [Recovered/Resolved]
  - Hereditary angioedema [Recovered/Resolved]
  - Hereditary angioedema [Recovered/Resolved]
  - Hereditary angioedema [Recovered/Resolved]
  - Hereditary angioedema [Recovered/Resolved]
  - Hereditary angioedema [Unknown]
  - Hereditary angioedema [Unknown]
  - Hereditary angioedema [Unknown]
  - Hereditary angioedema [Unknown]
  - Hereditary angioedema [Unknown]
  - Hereditary angioedema [Recovered/Resolved]
  - Hereditary angioedema [Recovered/Resolved]
  - Product dose omission in error [Unknown]
  - Off label use [Unknown]
  - Product dose omission in error [Unknown]
  - Off label use [Unknown]
  - Limb injury [Unknown]
  - Product dose omission in error [Unknown]
  - Product prescribing issue [Unknown]
  - Product dose omission in error [Unknown]
  - Product use issue [Unknown]
  - Product dose omission issue [Unknown]
  - Ill-defined disorder [Unknown]
  - Product dose omission in error [Unknown]
  - Weight decreased [Unknown]
  - Product dose omission in error [Unknown]
  - Stress [Unknown]

NARRATIVE: CASE EVENT DATE: 20230101
